FAERS Safety Report 9187764 (Version 1)
Quarter: 2013Q1

REPORT INFORMATION
  Report Type: Spontaneous
  Country: FR (occurrence: FR)
  Receive Date: 20130325
  Receipt Date: 20130325
  Transmission Date: 20140127
  Serious: Yes (Life-Threatening, Hospitalization)
  Sender: FDA-Public Use
  Company Number: FR-ABBOTT-13P-056-1066271-00

PATIENT
  Age: 40 Year
  Sex: Male

DRUGS (2)
  1. HUMIRA [Suspect]
     Indication: RHEUMATOID ARTHRITIS
     Route: 058
     Dates: start: 20120727
  2. METOJECT [Concomitant]
     Indication: RHEUMATOID ARTHRITIS
     Route: 058

REACTIONS (6)
  - Acute respiratory distress syndrome [Recovered/Resolved]
  - Varicella [Recovered/Resolved]
  - Lung disorder [Recovered/Resolved]
  - Malnutrition [Unknown]
  - Weight decreased [Unknown]
  - Scar [Unknown]
